FAERS Safety Report 8574440-3 (Version None)
Quarter: 2012Q3

REPORT INFORMATION
  Report Type: 
  Country: None (occurrence: None)
  Receive Date: 20120806
  Receipt Date: 20120416
  Transmission Date: 20120928
  Serious: No
  Sender: FDA-Public Use
  Company Number: US-ABBOTT-12P-163-0927904-00

PATIENT
  Age: 57 Year
  Sex: Female
  Weight: 54.48 kg

DRUGS (1)
  1. DEPAKOTE ER [Suspect]
     Indication: CONVULSION
     Route: 048
     Dates: start: 19860101

REACTIONS (7)
  - NECK PAIN [None]
  - MUSCLE SPASMS [None]
  - HEAD INJURY [None]
  - HEADACHE [None]
  - FALL [None]
  - INFLAMMATION [None]
  - ACCIDENT [None]
